FAERS Safety Report 8298588-6 (Version None)
Quarter: 2012Q2

REPORT INFORMATION
  Report Type: 
  Country: None (occurrence: None)
  Receive Date: 20120419
  Receipt Date: 20120406
  Transmission Date: 20120825
  Serious: Yes (Other)
  Sender: FDA-Public Use
  Company Number: FR-CELGENEUS-056-21880-12040770

PATIENT
  Sex: Male
  Weight: 73 kg

DRUGS (7)
  1. REVLIMID [Suspect]
     Indication: MULTIPLE MYELOMA
     Dosage: 25 MILLIGRAM
     Route: 048
     Dates: start: 20110815, end: 20110904
  2. ZOMETA [Concomitant]
     Route: 041
  3. ASPIRIN [Concomitant]
     Indication: THROMBOSIS PROPHYLAXIS
     Route: 065
  4. ASPEGIC 1000 [Concomitant]
     Route: 048
  5. REVLIMID [Suspect]
     Dosage: 25 MILLIGRAM
     Route: 048
     Dates: start: 20110425
  6. DEXAMETHASONE [Suspect]
     Indication: MULTIPLE MYELOMA
     Route: 048
     Dates: start: 20110815, end: 20110911
  7. DEXAMETHASONE [Suspect]
     Route: 048
     Dates: start: 20110425

REACTIONS (1)
  - PROSTATE CANCER [None]
